FAERS Safety Report 5844432-3 (Version None)
Quarter: 2008Q3

REPORT INFORMATION
  Report Type: 
  Country: None (occurrence: None)
  Receive Date: 20080813
  Receipt Date: 20080805
  Transmission Date: 20090109
  Serious: Yes (Other)
  Sender: FDA-Public Use
  Company Number: JP-ABBOTT-08P-087-0470330-00

PATIENT
  Sex: Female
  Weight: 48 kg

DRUGS (5)
  1. CLARITHROMYCIN [Suspect]
     Indication: HELICOBACTER INFECTION
     Route: 048
     Dates: start: 20080710, end: 20080710
  2. TAKEPRON CAPSULES [Suspect]
     Indication: HELICOBACTER INFECTION
     Route: 048
     Dates: start: 20080710, end: 20080710
  3. AMOXICILLIN TRIHYDRATE [Suspect]
     Indication: HELICOBACTER INFECTION
     Route: 048
     Dates: start: 20080710, end: 20080710
  4. CLOTIAZEPAM [Concomitant]
     Indication: DRUG USE FOR UNKNOWN INDICATION
     Route: 048
     Dates: start: 20080115
  5. ALFACALCIDOL [Concomitant]
     Indication: DRUG USE FOR UNKNOWN INDICATION
     Route: 048
     Dates: start: 20060101

REACTIONS (7)
  - CONJUNCTIVAL HYPERAEMIA [None]
  - GENERALISED ERYTHEMA [None]
  - NASAL MUCOSAL DISORDER [None]
  - NAUSEA [None]
  - PRURITUS GENERALISED [None]
  - RASH [None]
  - STEVENS-JOHNSON SYNDROME [None]
